FAERS Safety Report 7597060-6 (Version None)
Quarter: 2011Q3

REPORT INFORMATION
  Report Type: 
  Country: None (occurrence: None)
  Receive Date: 20110708
  Receipt Date: 20110705
  Transmission Date: 20111222
  Serious: Yes (Other)
  Sender: FDA-Public Use
  Company Number: US-PFIZER INC-2011028483

PATIENT
  Sex: Female
  Weight: 70.295 kg

DRUGS (2)
  1. ADVIL CONGESTION RELIEF [Suspect]
     Indication: NASAL OEDEMA
     Dosage: 200\10 MG, 2X/DAY
     Route: 048
     Dates: start: 20110207, end: 20110208
  2. FLUTICASONE [Concomitant]
     Indication: HYPERSENSITIVITY
     Dosage: UNK

REACTIONS (4)
  - NASAL OEDEMA [None]
  - DRUG INEFFECTIVE [None]
  - HYPERSENSITIVITY [None]
  - DYSPNOEA [None]
